FAERS Safety Report 9601751 (Version 1)
Quarter: 2013Q4

REPORT INFORMATION
  Report Type: Spontaneous
  Country: JP (occurrence: None)
  Receive Date: 20131002
  Receipt Date: 20131002
  Transmission Date: 20140711
  Serious: Yes (Hospitalization)
  Sender: FDA-Public Use
  Company Number: PNIS20130007

PATIENT
  Age: 84 Year
  Sex: Female

DRUGS (5)
  1. PREDNISOLONE [Suspect]
     Indication: PYREXIA
     Dosage: 1 IN 1 D
     Route: 048
  2. PREDNISOLONE [Suspect]
     Indication: DECREASED APPETITE
     Dosage: 1 IN 1 D
     Route: 048
  3. RIFAMPICIN [Suspect]
     Indication: DISSEMINATED TUBERCULOSIS
  4. ISONIAZID (ISONIAZID) [Concomitant]
  5. ETHAMBUTOL (ETHAMBUTOL) [Concomitant]

REACTIONS (1)
  - Pneumonitis [None]
